FAERS Safety Report 4688102-6 (Version None)
Quarter: 2005Q2

REPORT INFORMATION
  Report Type: 
  Country: None (occurrence: None)
  Receive Date: 20050609
  Receipt Date: 20050527
  Transmission Date: 20051028
  Serious: Yes (Other)
  Sender: FDA-Public Use
  Company Number: 2005080621

PATIENT
  Age: 79 Year
  Sex: Female
  Weight: 72.5755 kg

DRUGS (5)
  1. BENADRYL [Suspect]
     Indication: URTICARIA
     Dosage: 3 TABS IN 24H, ORAL
     Route: 048
     Dates: start: 20050527, end: 20050527
  2. CALADRYL [Suspect]
     Indication: URTICARIA
     Dosage: TOPICAL
     Route: 061
     Dates: start: 20050527, end: 20050527
  3. BENACINE (DIPHENHYDRAMINE HYDROCHLORIDE, HYOSCINE HYDROBROMIDE) [Suspect]
     Indication: URTICARIA
     Dosage: TOPICAL
     Route: 061
     Dates: start: 20050527, end: 20050527
  4. ETHANOL (ETHANOL) [Suspect]
     Dosage: SEVERAL GLASSES, ORAL
     Route: 048
     Dates: start: 20050526, end: 20050526
  5. OMEPRAZOLE [Concomitant]

REACTIONS (4)
  - JOINT SWELLING [None]
  - OEDEMA PERIPHERAL [None]
  - PRURITUS [None]
  - SWELLING FACE [None]
